FAERS Safety Report 4653808-1 (Version None)
Quarter: 2005Q2

REPORT INFORMATION
  Report Type: 
  Country: None (occurrence: None)
  Receive Date: 20050404
  Receipt Date: 20050131
  Transmission Date: 20051028
  Serious: Yes (Death)
  Sender: FDA-Public Use
  Company Number: USA050188913

PATIENT
  Age: 34 Year
  Sex: Male
  Weight: 74 kg

DRUGS (2)
  1. CYMBALTA [Suspect]
     Indication: DEPRESSION
     Dosage: 30 MG/1 DAY
     Dates: start: 20041210
  2. WELLBUTRIN [Concomitant]

REACTIONS (1)
  - COMPLETED SUICIDE [None]
